FAERS Safety Report 21180150 (Version 4)
Quarter: 2022Q4

REPORT INFORMATION
  Report Type: Spontaneous
  Country: CA (occurrence: CA)
  Receive Date: 20220806
  Receipt Date: 20221111
  Transmission Date: 20230113
  Serious: Yes (Other)
  Sender: FDA-Public Use
  Company Number: CA-CELLTRION INC.-2022CA008568

PATIENT

DRUGS (6)
  1. INFLECTRA [Suspect]
     Active Substance: INFLIXIMAB-DYYB
     Indication: Crohn^s disease
     Dosage: 400 MG, INDUCTION AT Q 0, 2, 6 WEEK, THEN EVERY 8 WEEKS
     Route: 042
     Dates: start: 20220413
  2. INFLECTRA [Suspect]
     Active Substance: INFLIXIMAB-DYYB
     Dosage: 400 MG, INDUCTION AT Q 0 ,2, 6 WEEK, THEN EVERY 8 WEEKS
     Route: 042
     Dates: start: 20220429
  3. INFLECTRA [Suspect]
     Active Substance: INFLIXIMAB-DYYB
     Dosage: 400 MG, INDUCTION AT Q 0 ,2, 6 WEEK, THEN EVERY 8 WEEKS
     Route: 042
     Dates: start: 20220519
  4. INFLECTRA [Suspect]
     Active Substance: INFLIXIMAB-DYYB
     Dosage: 400 MG INDUCTION AT Q 0 ,2, 6 WEEK, THEN EVERY 8 WEEKS
     Route: 042
     Dates: start: 20220715
  5. INFLECTRA [Suspect]
     Active Substance: INFLIXIMAB-DYYB
     Dosage: 400 MG INDUCTION AT Q 0 ,2, 6 WEEK, THEN EVERY 8 WEEKS
     Route: 042
     Dates: start: 20221101
  6. IMURAN [Concomitant]
     Active Substance: AZATHIOPRINE
     Dosage: 1 DF, UNKNOWN DOSE
     Route: 065

REACTIONS (6)
  - Condition aggravated [Not Recovered/Not Resolved]
  - Off label use [Unknown]
  - Anal fissure [Unknown]
  - Fistula discharge [Not Recovered/Not Resolved]
  - Abdominal discomfort [Unknown]
  - Blood pressure increased [Unknown]

NARRATIVE: CASE EVENT DATE: 20220101
